FAERS Safety Report 4693727-8 (Version None)
Quarter: 2005Q2

REPORT INFORMATION
  Report Type: 
  Country: None (occurrence: None)
  Receive Date: 20050615
  Receipt Date: 20050530
  Transmission Date: 20051028
  Serious: Yes (Death, Other)
  Sender: FDA-Public Use
  Company Number: 2005-DE-02004GD

PATIENT
  Sex: Male

DRUGS (4)
  1. METHOTREXATE [Suspect]
     Indication: SYNOVIAL SARCOMA
     Dates: start: 19990601
  2. ALPHA (TASONERMIN ) (TASONERMIN) [Suspect]
     Indication: SYNOVIAL SARCOMA
     Dosage: 2 MG
     Dates: start: 19991101
  3. MELPHALAN (MELPHALAN) [Suspect]
     Dosage: SEE TEXT
     Dates: start: 19991101
  4. VINBLASTINE (VINVLASTINE) [Suspect]
     Dates: start: 19990601

REACTIONS (8)
  - DRUG INEFFECTIVE [None]
  - DRUG TOXICITY [None]
  - DYSAESTHESIA [None]
  - METASTASES TO LUNG [None]
  - MYOGLOBIN BLOOD INCREASED [None]
  - PLEURAL EFFUSION [None]
  - PNEUMOTHORAX [None]
  - PROCEDURAL COMPLICATION [None]
